FAERS Safety Report 6233378-7 (Version None)
Quarter: 2009Q2

REPORT INFORMATION
  Report Type: 
  Country: None (occurrence: None)
  Receive Date: 20090616
  Receipt Date: 20090616
  Transmission Date: 20091009
  Serious: Yes (Other)
  Sender: FDA-Public Use
  Company Number: None

PATIENT
  Age: 47 Year
  Sex: Male
  Weight: 132.3 kg

DRUGS (1)
  1. TOPIRAMATE [Suspect]
     Indication: COMPLEX PARTIAL SEIZURES
     Dosage: 50 MG DAILY ORAL
     Route: 048
     Dates: start: 20090417

REACTIONS (2)
  - PARTIAL SEIZURES [None]
  - THERAPEUTIC RESPONSE UNEXPECTED WITH DRUG SUBSTITUTION [None]
